FAERS Safety Report 6001058-9 (Version None)
Quarter: 2008Q4

REPORT INFORMATION
  Report Type: 
  Country: None (occurrence: None)
  Receive Date: 20081215
  Receipt Date: 20071212
  Transmission Date: 20090506
  Serious: No
  Sender: FDA-Public Use
  Company Number: US-AMGEN-KDL246381

PATIENT
  Sex: Female

DRUGS (5)
  1. ENBREL [Suspect]
     Indication: RHEUMATOID ARTHRITIS
     Route: 058
     Dates: start: 20050205
  2. PREDNISONE TAB [Concomitant]
     Dates: start: 20050309
  3. DARVOCET-N 100 [Concomitant]
     Dates: start: 20071004
  4. PERCOCET [Concomitant]
     Dates: start: 20070601
  5. RELAFEN [Concomitant]
     Dates: start: 20051004

REACTIONS (8)
  - CONTUSION [None]
  - HYPOAESTHESIA [None]
  - INJECTION SITE HAEMATOMA [None]
  - INSOMNIA [None]
  - MUSCLE SPASMS [None]
  - OEDEMA PERIPHERAL [None]
  - PALLOR [None]
  - RHEUMATOID ARTHRITIS [None]
